FAERS Safety Report 4517051-9 (Version None)
Quarter: 2005Q1

REPORT INFORMATION
  Report Type: 
  Country: None (occurrence: None)
  Receive Date: 20041029
  Receipt Date: 20040930
  Transmission Date: 20050727
  Serious: No
  Sender: FDA-Public Use
  Company Number: 2004-120823-NL

PATIENT
  Age: 20 Year
  Sex: Female

DRUGS (2)
  1. NUVARING [Suspect]
     Indication: CONTRACEPTION
     Dosage: DF DAILY VAGINAL
     Route: 067
     Dates: start: 20021001
  2. MULTIVITAMIN ^LAPPE^ [Concomitant]

REACTIONS (3)
  - HEADACHE [None]
  - SINUS HEADACHE [None]
  - SINUSITIS [None]
